FAERS Safety Report 9331933 (Version 1)
Quarter: 2013Q2

REPORT INFORMATION
  Report Type: Spontaneous
  Country: US (occurrence: US)
  Receive Date: 20130605
  Receipt Date: 20130605
  Transmission Date: 20140414
  Serious: Yes (Death)
  Sender: FDA-Public Use
  Company Number: US-PFIZER INC-2013166794

PATIENT
  Age: 16 Year
  Sex: Male
  Weight: 68.48 kg

DRUGS (4)
  1. ZITHROMAX [Suspect]
     Dosage: UNK
  2. PREDNISONE [Suspect]
     Dosage: TAPERING DOSE DAYS 1 TO 7, 40 MG; DAYS 8 TO 10, 35 MG; DAYS 11 TO 13, 30 MG; DAYS 14 TO 16, 25 MG;
  3. AMOXICILLIN [Suspect]
     Indication: INFECTION
     Dosage: 250 MG
  4. LORTAB [Concomitant]
     Indication: PAIN
     Dosage: 5/500

REACTIONS (3)
  - Eosinophilic myocarditis [Fatal]
  - Rash [Unknown]
  - Drug ineffective [Unknown]
